FAERS Safety Report 19254920 (Version 1)
Quarter: 2021Q2

REPORT INFORMATION
  Report Type: Spontaneous
  Country: US (occurrence: US)
  Receive Date: 20210513
  Receipt Date: 20210513
  Transmission Date: 20210717
  Serious: Yes (Hospitalization, Other)
  Sender: FDA-Public Use
  Company Number: US-AUROBINDO-AUR-APL-2021-018693

PATIENT
  Age: 37 Year
  Sex: Female

DRUGS (3)
  1. ARGATROBAN SODIUM CHLORIDE [Suspect]
     Active Substance: ARGATROBAN
     Indication: CEREBROVASCULAR ACCIDENT
     Dosage: UNK
     Route: 065
  2. HEPARIN [Suspect]
     Active Substance: HEPARIN SODIUM
     Indication: PRODUCT USED FOR UNKNOWN INDICATION
     Dosage: UNK
     Route: 065
  3. IMMUNOGLOBULIN [Concomitant]
     Indication: PRODUCT USED FOR UNKNOWN INDICATION
     Dosage: 0.4 GRAM PER KILOGRAM, DAILY
     Route: 042

REACTIONS (2)
  - Drug ineffective [Unknown]
  - Cerebrovascular accident [Unknown]
